FAERS Safety Report 8736401 (Version 2)
Quarter: 2014Q1

REPORT INFORMATION
  Report Type: Spontaneous
  Country: US (occurrence: US)
  Receive Date: 20120822
  Receipt Date: 20140301
  Transmission Date: 20141002
  Serious: No
  Sender: FDA-Public Use
  Company Number: US-ASTRAZENECA-2012SE57386

PATIENT
  Age: 68 Year
  Sex: Female
  Weight: 44.5 kg

DRUGS (8)
  1. NEXIUM [Suspect]
     Indication: GASTROOESOPHAGEAL REFLUX DISEASE
     Route: 048
     Dates: start: 2001, end: 2007
  2. NEXIUM [Suspect]
     Indication: GASTRIC ULCER
     Route: 048
     Dates: start: 2001, end: 2007
  3. NEXIUM [Suspect]
     Indication: OESOPHAGEAL ULCER
     Route: 048
     Dates: start: 2001, end: 2007
  4. NEXIUM [Suspect]
     Indication: GASTROOESOPHAGEAL REFLUX DISEASE
     Route: 048
     Dates: start: 2013, end: 201312
  5. NEXIUM [Suspect]
     Indication: GASTRIC ULCER
     Route: 048
     Dates: start: 2013, end: 201312
  6. NEXIUM [Suspect]
     Indication: OESOPHAGEAL ULCER
     Route: 048
     Dates: start: 2013, end: 201312
  7. PRILOSEC [Suspect]
     Indication: GASTRIC ULCER
     Route: 048
     Dates: start: 2001
  8. ZANTAC [Concomitant]
     Indication: GASTRIC ULCER

REACTIONS (2)
  - Abdominal pain upper [Unknown]
  - Intentional drug misuse [Not Recovered/Not Resolved]
